FAERS Safety Report 4849219-6 (Version None)
Quarter: 2005Q4

REPORT INFORMATION
  Report Type: 
  Country: None (occurrence: None)
  Receive Date: 20051209
  Receipt Date: 20020401
  Transmission Date: 20060501
  Serious: Yes (Other)
  Sender: FDA-Public Use
  Company Number: US-BRISTOL-MYERS SQUIBB COMPANY-13176672

PATIENT

DRUGS (1)
  1. TEQUIN [Suspect]

REACTIONS (1)
  - TORSADE DE POINTES [None]
